FAERS Safety Report 13045689 (Version 2)
Quarter: 2017Q1

REPORT INFORMATION
  Report Type: Spontaneous
  Country: US (occurrence: US)
  Receive Date: 20161220
  Receipt Date: 20170206
  Transmission Date: 20170428
  Serious: Yes (Other)
  Sender: FDA-Public Use
  Company Number: US-009507513-1612USA007149

PATIENT
  Age: 70 Year
  Sex: Male
  Weight: 206 kg

DRUGS (3)
  1. ZERBAXA [Concomitant]
     Active Substance: CEFTOLOZANE SULFATE\TAZOBACTAM SODIUM
     Dosage: 3G/ 24 HOUR
     Dates: start: 20161212
  2. GENTAMICIN SULFATE. [Suspect]
     Active Substance: GENTAMICIN SULFATE
     Indication: MEDICAL DEVICE SITE INFECTION
     Dosage: 350 MG, (3.7 MG/KG) 3X WEEKLY
     Dates: start: 20161101, end: 20161206
  3. ZERBAXA [Concomitant]
     Active Substance: CEFTOLOZANE SULFATE\TAZOBACTAM SODIUM
     Indication: INFECTION
     Dosage: 6G/ 24 HOURS
     Dates: start: 20160729, end: 20161031

REACTIONS (1)
  - Acute kidney injury [Recovered/Resolved]

NARRATIVE: CASE EVENT DATE: 20161128
